FAERS Safety Report 6630695-3 (Version None)
Quarter: 2010Q1

REPORT INFORMATION
  Report Type: 
  Country: None (occurrence: None)
  Receive Date: 20100311
  Receipt Date: 20090527
  Transmission Date: 20100710
  Serious: No
  Sender: FDA-Public Use
  Company Number: US-BIOGENIDEC-2009BI016432

PATIENT
  Age: 42 Year
  Sex: Female

DRUGS (3)
  1. AVONEX [Suspect]
     Indication: MULTIPLE SCLEROSIS
     Route: 030
     Dates: start: 20010612
  2. AVONEX [Suspect]
     Route: 030
  3. BETASERON [Concomitant]
     Dates: end: 20090501

REACTIONS (1)
  - GAIT DISTURBANCE [None]
